FAERS Safety Report 9224666 (Version 1)
Quarter: 2013Q2

REPORT INFORMATION
  Report Type: Spontaneous
  Country: US (occurrence: US)
  Receive Date: 20130411
  Receipt Date: 20130411
  Transmission Date: 20140414
  Serious: No
  Sender: FDA-Public Use
  Company Number: US-BAYER-2013-045581

PATIENT
  Age: 69 Year
  Sex: Male
  Weight: 80.73 kg

DRUGS (5)
  1. ALEVE TABLET [Suspect]
     Indication: ARTHRITIS
     Dosage: 1 DF, PRN
     Route: 048
     Dates: start: 2013
  2. ALEVE TABLET [Suspect]
     Indication: ARTHRITIS
     Dosage: 2 DF, UNK FOR 2 WEEKS
     Route: 048
     Dates: start: 201303
  3. ADVAIR [Concomitant]
  4. EMBERAL [Concomitant]
  5. METHOTREXATE [Concomitant]

REACTIONS (1)
  - Incorrect drug administration duration [None]
